FAERS Safety Report 6882570-7 (Version None)
Quarter: 2010Q3

REPORT INFORMATION
  Report Type: 
  Country: None (occurrence: None)
  Receive Date: 20100702
  Receipt Date: 20100125
  Transmission Date: 20110219
  Serious: Yes (Other)
  Sender: FDA-Public Use
  Company Number: 10-000135

PATIENT
  Age: 15 Year
  Sex: Female

DRUGS (1)
  1. DORYX [Suspect]
     Indication: ACNE
     Dosage: 150 MG, QD, ORAL
     Route: 048
     Dates: start: 20090101, end: 20091201

REACTIONS (1)
  - BENIGN INTRACRANIAL HYPERTENSION [None]
